FAERS Safety Report 25939885 (Version 1)
Quarter: 2025Q4

REPORT INFORMATION
  Report Type: Report from Study
  Country: GB (occurrence: GB)
  Receive Date: 20251020
  Receipt Date: 20251020
  Transmission Date: 20260118
  Serious: Yes (Other)
  Sender: IPSEN BIOPHARMACEUTICALS, INC.
  Company Number: GB-IPSEN Group, Research and Development-2025-00826

PATIENT
  Sex: Female

DRUGS (2)
  1. LANREOTIDE ACETATE [Suspect]
     Active Substance: LANREOTIDE ACETATE
     Indication: Neuroendocrine tumour
     Dosage: 120MG/0.5ML SOLUTION FOR INJECTION PRE-FILLED SYRINGES, VIA DEEP SUBCUTANEOUS ROUTE
     Route: 058
     Dates: start: 20241113
  2. QUESTRAN [Concomitant]
     Active Substance: CHOLESTYRAMINE

REACTIONS (5)
  - Faecaloma [Unknown]
  - Nasopharyngitis [Recovering/Resolving]
  - Diarrhoea [Unknown]
  - Weight decreased [Recovered/Resolved]
  - Diarrhoea [Not Recovered/Not Resolved]
